FAERS Safety Report 22316330 (Version 3)
Quarter: 2024Q4

REPORT INFORMATION
  Report Type: Spontaneous
  Country: DE (occurrence: DE)
  Receive Date: 20230513
  Receipt Date: 20241010
  Transmission Date: 20250115
  Serious: Yes (Death, Hospitalization, Other)
  Sender: CELLTRION
  Company Number: DE-CELLTRION INC.-2023DE009783

PATIENT

DRUGS (10)
  1. INFLIXIMAB [Suspect]
     Active Substance: INFLIXIMAB
     Indication: Graft versus host disease
     Dosage: HE RECEIVED GVHD TREATMENT WITH CICLOSPORIN, PREDNISOLONE, METHYLPREDNISOLONE, TACROLIMUS, INFLIXIMA
  2. RUXOLITINIB [Suspect]
     Active Substance: RUXOLITINIB
     Indication: Graft versus host disease
     Dosage: HE RECEIVED GVHD TREATMENT WITH CICLOSPORIN, PREDNISOLONE, METHYLPREDNISOLONE, TACROLIMUS, INFLIXIMA
  3. THIOTEPA [Suspect]
     Active Substance: THIOTEPA
     Indication: Product used for unknown indication
     Dosage: HE RECEIVED CONDITIONING REGIMEN WITH FLUDARABINE [FLUDARABIN], THIOTEPA, ANTITHYMOCYTE GLOBULIN [AT
  4. METHYLPREDNISOLONE [Suspect]
     Active Substance: METHYLPREDNISOLONE
     Indication: Graft versus host disease
     Dosage: HE RECEIVED GVHD TREATMENT WITH CICLOSPORIN, PREDNISOLONE, METHYLPREDNISOLONE, TACROLIMUS, INFLIXIMA
  5. FLUDARABINE [Suspect]
     Active Substance: FLUDARABINE PHOSPHATE
     Indication: Product used for unknown indication
     Dosage: HE RECEIVED CONDITIONING REGIMEN WITH FLUDARABINE [FLUDARABIN], THIOTEPA, ANTITHYMOCYTE GLOBULIN [AT
  6. TACROLIMUS [Suspect]
     Active Substance: TACROLIMUS
     Indication: Graft versus host disease
     Dosage: HE RECEIVED GVHD TREATMENT WITH CICLOSPORIN, PREDNISOLONE, METHYLPREDNISOLONE, TACROLIMUS, INFLIXIMA
  7. CYCLOSPORINE [Suspect]
     Active Substance: CYCLOSPORINE
     Indication: Graft versus host disease
     Dosage: PROPHYLAXIS WITH CICLOSPORIN [CYCLOSPORIN A], METHOTREXATE FOR PREVENTION OF GVHD.HE RECEIVED GVHD T
  8. CYCLOSPORINE [Suspect]
     Active Substance: CYCLOSPORINE
     Indication: Prophylaxis
  9. METHOTREXATE [Suspect]
     Active Substance: METHOTREXATE
     Indication: Graft versus host disease
     Dosage: PROPHYLAXIS WITH CICLOSPORIN [CYCLOSPORIN A], METHOTREXATE FOR PREVENTION OF GVHD.HE RECEIVED GVHD T
  10. PREDNISOLONE [Suspect]
     Active Substance: PREDNISOLONE
     Indication: Graft versus host disease
     Dosage: HE RECEIVED GVHD TREATMENT WITH CICLOSPORIN, PREDNISOLONE, METHYLPREDNISOLONE, TACROLIMUS, INFLIXIMA

REACTIONS (7)
  - Oesophagitis [Fatal]
  - Osteonecrosis [Fatal]
  - Respiratory failure [Fatal]
  - Haemoptysis [Fatal]
  - Urethral polyp [Fatal]
  - Drug ineffective [Fatal]
  - Intentional product use issue [Unknown]
